FAERS Safety Report 13517078 (Version 13)
Quarter: 2018Q2

REPORT INFORMATION
  Report Type: Spontaneous
  Country: CA (occurrence: CA)
  Receive Date: 20170505
  Receipt Date: 20180531
  Transmission Date: 20180711
  Serious: Yes (Other)
  Sender: FDA-Public Use
  Company Number: CA-CELLTRION INC.-2017CA004479

PATIENT

DRUGS (11)
  1. INFLECTRA [Suspect]
     Active Substance: INFLIXIMAB-DYYB
     Indication: PSORIASIS
     Dosage: 1000 MG, (10 MG/KG) THEN EVERY 8 WEEKS
     Route: 042
  2. INFLECTRA [Suspect]
     Active Substance: INFLIXIMAB-DYYB
     Dosage: 1000 MG, CYCLIC
     Route: 042
     Dates: start: 20171204
  3. INFLECTRA [Suspect]
     Active Substance: INFLIXIMAB-DYYB
     Dosage: 1000 MG (10 MG/KG) EVERY 5 WEEKS
     Route: 065
     Dates: start: 20180315
  4. INFLECTRA [Suspect]
     Active Substance: INFLIXIMAB-DYYB
     Dosage: 1000 MG (10 MG/KG) EVERY 5 WEEKS
     Route: 065
     Dates: start: 20180523
  5. INFLECTRA [Suspect]
     Active Substance: INFLIXIMAB-DYYB
     Dosage: 1000 MG (10 MG/KG) EVERY 5 WEEKS
     Route: 065
     Dates: start: 20180417
  6. METHOTREXATE SODIUM LEDERLE [Suspect]
     Active Substance: METHOTREXATE SODIUM
     Indication: PRODUCT USED FOR UNKNOWN INDICATION
     Dosage: 6 TABLETS, WEEKLY
     Route: 065
     Dates: start: 20170201
  7. MESALAMINE. [Concomitant]
     Active Substance: MESALAMINE
     Dosage: 800 MG, BID
     Route: 065
     Dates: start: 201609
  8. INFLECTRA [Suspect]
     Active Substance: INFLIXIMAB-DYYB
     Dosage: 1000 MG (10 MG/KG) EVERY 5 WEEKS
     Route: 065
  9. INFLECTRA [Suspect]
     Active Substance: INFLIXIMAB-DYYB
     Dosage: 1000 MG (10 MG/KG) EVERY 5 WEEKS
     Route: 065
     Dates: start: 20180523
  10. INFLECTRA [Suspect]
     Active Substance: INFLIXIMAB-DYYB
     Indication: COLITIS ULCERATIVE
     Dosage: 500 MG, EACH 0, 2, 6 WEEKS, THEN EVERY 8 WEEKS FOR 12 MONTHS
     Route: 042
     Dates: start: 20170324
  11. INFLECTRA [Suspect]
     Active Substance: INFLIXIMAB-DYYB
     Dosage: 1000 MG (10 MG/KG) EVERY 6 WEEKS
     Route: 042
     Dates: start: 20180207

REACTIONS (12)
  - Flatulence [Not Recovered/Not Resolved]
  - Fatigue [Recovered/Resolved]
  - Haematochezia [Not Recovered/Not Resolved]
  - Blood pressure fluctuation [Unknown]
  - Product use issue [Not Recovered/Not Resolved]
  - Therapeutic response shortened [Unknown]
  - Insomnia [Unknown]
  - Diarrhoea [Not Recovered/Not Resolved]
  - Heart rate abnormal [Not Recovered/Not Resolved]
  - Defaecation urgency [Unknown]
  - C-reactive protein increased [Not Recovered/Not Resolved]
  - Headache [Recovered/Resolved]

NARRATIVE: CASE EVENT DATE: 20170325
